FAERS Safety Report 10275596 (Version 1)
Quarter: 2014Q3

REPORT INFORMATION
  Report Type: Spontaneous
  Country: US (occurrence: None)
  Receive Date: 20140701
  Receipt Date: 20140701
  Transmission Date: 20150326
  Serious: Yes (Hospitalization)
  Sender: FDA-Public Use
  Company Number: None

PATIENT
  Age: 08 Year
  Sex: Male
  Weight: 23.13 kg

DRUGS (9)
  1. ZOFRAN [Concomitant]
     Active Substance: ONDANSETRON HYDROCHLORIDE
  2. LIDOCAINE. [Concomitant]
     Active Substance: LIDOCAINE
  3. BACTRIM [Concomitant]
     Active Substance: SULFAMETHOXAZOLE\TRIMETHOPRIM
  4. 0.9% NACL FLUSH [Concomitant]
  5. IV SOLUTION LOW DEXTROSE [Concomitant]
  6. CALCIUM ACETATE. [Concomitant]
     Active Substance: CALCIUM ACETATE
  7. HSV1716 [Suspect]
     Active Substance: HUMAN HERPESVIRUS 1, 1716 (ICP 34.5 DELETION)
     Indication: RHABDOMYOSARCOMA
     Route: 042
     Dates: start: 20140529
  8. HEMP OIL [Concomitant]
     Active Substance: CANNABIS SATIVA SEED OIL
  9. HEPARIN [Concomitant]
     Active Substance: HEPARIN SODIUM

REACTIONS (3)
  - Hydronephrosis [None]
  - Renal failure [None]
  - Nephropathy toxic [None]

NARRATIVE: CASE EVENT DATE: 20140616
